FAERS Safety Report 9548830 (Version 1)
Quarter: 2013Q3

REPORT INFORMATION
  Report Type: Spontaneous
  Country: US (occurrence: US)
  Receive Date: 20130924
  Receipt Date: 20130924
  Transmission Date: 20140515
  Serious: No
  Sender: FDA-Public Use
  Company Number: US-009507513-1207USA002918

PATIENT
  Sex: Female
  Weight: 85.81 kg

DRUGS (3)
  1. IMPLANON [Suspect]
     Indication: CONTRACEPTION
     Dosage: 1 DF, UNK
     Route: 059
     Dates: start: 20120703
  2. HYDROCODONE [Concomitant]
  3. ACETAMINOPHEN [Concomitant]

REACTIONS (3)
  - Implant site swelling [Not Recovered/Not Resolved]
  - Implant site pruritus [Not Recovered/Not Resolved]
  - Pruritus [Not Recovered/Not Resolved]
